FAERS Safety Report 4352638-8 (Version None)
Quarter: 2004Q2

REPORT INFORMATION
  Report Type: 
  Country: None (occurrence: None)
  Receive Date: 20040429
  Receipt Date: 20040416
  Transmission Date: 20050107
  Serious: Yes (Life-Threatening)
  Sender: FDA-Public Use
  Company Number: 2003-BP-07426NB

PATIENT
  Age: 65 Year
  Sex: Female

DRUGS (3)
  1. MICARDIS [Suspect]
     Indication: HYPOTENSION
     Dosage: 40 MG PO
     Route: 048
     Dates: start: 20030816
  2. ADALAT-CR (TAD) [Concomitant]
  3. HERBESSER R (KAP) [Concomitant]

REACTIONS (2)
  - ELECTROCARDIOGRAM ST SEGMENT ELEVATION [None]
  - PRINZMETAL ANGINA [None]
